FAERS Safety Report 16592644 (Version 1)
Quarter: 2019Q3

REPORT INFORMATION
  Report Type: Spontaneous
  Country: US (occurrence: US)
  Receive Date: 20190605
  Receipt Date: 20190605
  Transmission Date: 20191004
  Serious: No
  Sender: FDA-Public Use
  Company Number: None

PATIENT
  Age: 58 Year
  Sex: Male

DRUGS (1)
  1. REPATHA [Suspect]
     Active Substance: EVOLOCUMAB
     Route: 058
     Dates: start: 20190130

REACTIONS (4)
  - Pain in extremity [None]
  - Arthralgia [None]
  - Arthropathy [None]
  - Condition aggravated [None]

NARRATIVE: CASE EVENT DATE: 20190130
